FAERS Safety Report 8615771-8 (Version None)
Quarter: 2012Q3

REPORT INFORMATION
  Report Type: 
  Country: None (occurrence: None)
  Receive Date: 20120823
  Receipt Date: 20120814
  Transmission Date: 20120928
  Serious: Yes (Hospitalization)
  Sender: FDA-Public Use
  Company Number: FR-009507513-1208FRA007412

PATIENT

DRUGS (10)
  1. GALANTAMINE HYDROBROMIDE [Concomitant]
     Route: 048
  2. FORADIL [Concomitant]
     Route: 048
  3. ALFUZOSIN HYDROCHLORIDE [Concomitant]
     Route: 048
  4. VIBRAMYCIN [Suspect]
     Indication: REMOVAL OF INTERNAL FIXATION
     Dosage: 200 MG, QD
     Route: 048
     Dates: start: 20120712
  5. LOVENOX [Suspect]
     Indication: REMOVAL OF INTERNAL FIXATION
     Dosage: 4000 IU, QD
     Route: 058
     Dates: start: 20120712
  6. FLUTICASONE PROPIONATE [Concomitant]
     Route: 048
  7. HYPERIUM [Concomitant]
     Route: 048
  8. CORDARONE [Concomitant]
     Route: 048
  9. ASPIRIN [Concomitant]
     Route: 048
  10. INVANZ [Suspect]
     Indication: REMOVAL OF INTERNAL FIXATION
     Dosage: 1 G, QD
     Route: 030
     Dates: start: 20120712, end: 20120726

REACTIONS (4)
  - HALLUCINATION, VISUAL [None]
  - DYSKINESIA [None]
  - MYOCLONUS [None]
  - DISTURBANCE IN ATTENTION [None]
